FAERS Safety Report 22829275 (Version 2)
Quarter: 2024Q3

REPORT INFORMATION
  Report Type: Spontaneous
  Country: PL (occurrence: PL)
  Receive Date: 20230816
  Receipt Date: 20240906
  Transmission Date: 20241017
  Serious: Yes (Other)
  Sender: BAUSCH AND LOMB
  Company Number: PL-JNJFOC-20230815410

PATIENT
  Age: 65 Year
  Sex: Female

DRUGS (19)
  1. DEXAMETHASONE [Suspect]
     Active Substance: DEXAMETHASONE
     Indication: Plasma cell myeloma
     Dosage: CYCLE 3
     Route: 065
     Dates: start: 20230302
  2. DEXAMETHASONE [Suspect]
     Active Substance: DEXAMETHASONE
     Dosage: CYCLE 4
     Route: 065
     Dates: start: 20230330, end: 20230427
  3. DEXAMETHASONE [Suspect]
     Active Substance: DEXAMETHASONE
     Dosage: CYCLE 1
     Route: 065
     Dates: start: 20230105
  4. DEXAMETHASONE [Suspect]
     Active Substance: DEXAMETHASONE
     Dosage: CYCLE 2
     Route: 065
     Dates: start: 20230202
  5. VELCADE [Suspect]
     Active Substance: BORTEZOMIB
     Indication: Plasma cell myeloma
     Dosage: CYCLE 3
     Route: 058
     Dates: start: 20230302
  6. VELCADE [Suspect]
     Active Substance: BORTEZOMIB
     Dosage: CYCLE 2
     Route: 065
     Dates: start: 20230202
  7. VELCADE [Suspect]
     Active Substance: BORTEZOMIB
     Dosage: CYCLE 1
     Route: 065
     Dates: start: 20230105
  8. THALIDOMIDE [Suspect]
     Active Substance: THALIDOMIDE
     Indication: Plasma cell myeloma
     Dosage: CYCLE 3
     Route: 065
     Dates: start: 20230302
  9. THALIDOMIDE [Suspect]
     Active Substance: THALIDOMIDE
     Dosage: CYCLE 2
     Route: 065
     Dates: start: 20230202
  10. THALIDOMIDE [Suspect]
     Active Substance: THALIDOMIDE
     Dosage: CYCLE 4
     Route: 065
     Dates: start: 20230330, end: 20230427
  11. THALIDOMIDE [Suspect]
     Active Substance: THALIDOMIDE
     Route: 065
     Dates: start: 20230105
  12. DARZALEX [Suspect]
     Active Substance: DARATUMUMAB
     Indication: Plasma cell myeloma
     Dosage: CYCLE 3
     Route: 058
     Dates: start: 20230302
  13. DARZALEX [Suspect]
     Active Substance: DARATUMUMAB
     Dosage: CYCLE 1
     Route: 058
     Dates: start: 20230105
  14. DARZALEX [Suspect]
     Active Substance: DARATUMUMAB
     Dosage: CYCLE 2
     Route: 058
     Dates: start: 20230202
  15. HASCOVIR [Concomitant]
     Indication: Product used for unknown indication
  16. DENOSUMAB [Concomitant]
     Active Substance: DENOSUMAB
     Indication: Product used for unknown indication
     Route: 058
  17. ZOMIKOS [Concomitant]
     Indication: Product used for unknown indication
  18. ACCARDIUM [Concomitant]
     Indication: Product used for unknown indication
     Route: 048
  19. CALCIUM CARBONATE\CHOLECALCIFEROL [Concomitant]
     Active Substance: CALCIUM CARBONATE\CHOLECALCIFEROL
     Indication: Product used for unknown indication

REACTIONS (1)
  - Clostridium difficile colitis [Unknown]
